FAERS Safety Report 8746272 (Version 3)
Quarter: 2012Q4

REPORT INFORMATION
  Report Type: Report from Study
  Country: US (occurrence: US)
  Receive Date: 20120827
  Receipt Date: 20121031
  Transmission Date: 20130627
  Serious: Yes (Hospitalization, Disabling)
  Sender: FDA-Public Use
  Company Number: US-JNJFOC-20120811877

PATIENT
  Age: 19 Year
  Sex: Female
  Weight: 53.6 kg

DRUGS (6)
  1. REMICADE [Suspect]
     Indication: INFLAMMATORY BOWEL DISEASE
     Route: 042
     Dates: start: 20100504, end: 201106
  2. MIRALAX [Concomitant]
  3. CHOLECALCIFEROL [Concomitant]
  4. BACTROBAN [Concomitant]
  5. ANTIBIOTICS FOR IBD [Concomitant]
     Indication: INFLAMMATORY BOWEL DISEASE
  6. ACETAMINOPHEN [Concomitant]

REACTIONS (1)
  - Lupus-like syndrome [Not Recovered/Not Resolved]
